FAERS Safety Report 24846745 (Version 1)
Quarter: 2025Q1

REPORT INFORMATION
  Report Type: Spontaneous
  Country: US (occurrence: US)
  Receive Date: 20250115
  Receipt Date: 20250115
  Transmission Date: 20250409
  Serious: No
  Sender: GUERBET
  Company Number: US-GUERBET / LLC-US-20240168

PATIENT
  Age: 37 Year
  Sex: Female
  Weight: 62.59 kg

DRUGS (1)
  1. OPTIRAY 320 [Suspect]
     Active Substance: IOVERSOL
     Indication: Computerised tomogram
     Route: 042
     Dates: start: 20241022, end: 20241022

REACTIONS (2)
  - Hypoaesthesia [Recovered/Resolved]
  - Expired product administered [Recovered/Resolved]

NARRATIVE: CASE EVENT DATE: 20241022
